FAERS Safety Report 22151486 (Version 1)
Quarter: 2023Q1

REPORT INFORMATION
  Report Type: Spontaneous
  Country: GR (occurrence: GR)
  Receive Date: 20230329
  Receipt Date: 20230329
  Transmission Date: 20230418
  Serious: Yes (Other)
  Sender: FDA-Public Use
  Company Number: GR-METUCHEN-STN-2023-0043

PATIENT
  Sex: Male

DRUGS (5)
  1. STENDRA [Suspect]
     Active Substance: AVANAFIL
     Indication: Product used for unknown indication
     Route: 048
  2. RISPERDAL CONSTA [Suspect]
     Active Substance: RISPERIDONE
     Indication: Product used for unknown indication
  3. CIALIS [Suspect]
     Active Substance: TADALAFIL
     Indication: Product used for unknown indication
  4. LEVITRA [Suspect]
     Active Substance: VARDENAFIL HYDROCHLORIDE
     Indication: Product used for unknown indication
  5. Tavor [Concomitant]
     Indication: Product used for unknown indication

REACTIONS (1)
  - Agitation [Unknown]
